FAERS Safety Report 11268076 (Version 1)
Quarter: 2015Q3

REPORT INFORMATION
  Report Type: Report from Study
  Country: US (occurrence: US)
  Receive Date: 20150714
  Receipt Date: 20150714
  Transmission Date: 20151125
  Serious: Yes (Death, Hospitalization, Other)
  Sender: FDA-Public Use
  Company Number: US-AMGEN-USASL2015052804

PATIENT
  Age: 52 Year
  Sex: Male

DRUGS (1)
  1. KYPROLIS [Suspect]
     Active Substance: CARFILZOMIB
     Indication: PLASMA CELL MYELOMA
     Dosage: UNK
     Route: 065
     Dates: start: 201504, end: 201505

REACTIONS (10)
  - Unevaluable event [Unknown]
  - Infection [Unknown]
  - Cerebral haemorrhage [Unknown]
  - Nausea [Unknown]
  - Seizure [Unknown]
  - Appendicectomy [Unknown]
  - No therapeutic response [Unknown]
  - Death [Fatal]
  - Back pain [Unknown]
  - Musculoskeletal chest pain [Unknown]

NARRATIVE: CASE EVENT DATE: 2015
